FAERS Safety Report 4427820-1 (Version None)
Quarter: 2004Q3

REPORT INFORMATION
  Report Type: 
  Country: None (occurrence: None)
  Receive Date: 20040817
  Receipt Date: 20040804
  Transmission Date: 20050211
  Serious: Yes (Hospitalization)
  Sender: FDA-Public Use
  Company Number: PHFR2004GB03093

PATIENT
  Sex: Female

DRUGS (3)
  1. TEGRETOL [Suspect]
     Dosage: 1200 MG, BID
  2. VALPROATE BISMUTH [Concomitant]
  3. ANALGESICS [Concomitant]

REACTIONS (2)
  - NAUSEA [None]
  - THERMAL BURN [None]
